FAERS Safety Report 6876983-7 (Version None)
Quarter: 2010Q3

REPORT INFORMATION
  Report Type: 
  Country: None (occurrence: None)
  Receive Date: 20100727
  Receipt Date: 20100712
  Transmission Date: 20110219
  Serious: Yes (Life-Threatening)
  Sender: FDA-Public Use
  Company Number: US-ELI_LILLY_AND_COMPANY-US201007002878

PATIENT
  Sex: Male

DRUGS (4)
  1. STRATTERA [Suspect]
     Indication: ATTENTION DEFICIT/HYPERACTIVITY DISORDER
     Dosage: 10 MG, UNK
  2. STRATTERA [Suspect]
     Dosage: 18 MG, UNK
  3. STRATTERA [Suspect]
     Dosage: 25 MG, UNK
  4. STRATTERA [Suspect]
     Dosage: 40 MG, UNK

REACTIONS (1)
  - SUICIDAL IDEATION [None]
